FAERS Safety Report 7480524-3 (Version None)
Quarter: 2011Q2

REPORT INFORMATION
  Report Type: 
  Country: None (occurrence: None)
  Receive Date: 20110516
  Receipt Date: 20070531
  Transmission Date: 20111010
  Serious: No
  Sender: FDA-Public Use
  Company Number: 2007BI011866

PATIENT
  Age: 71 Year
  Sex: Female

DRUGS (4)
  1. AVONEX [Concomitant]
     Indication: MULTIPLE SCLEROSIS
     Route: 030
     Dates: start: 20050329
  2. TYSABRI [Suspect]
     Indication: MULTIPLE SCLEROSIS
     Route: 042
     Dates: start: 20050106, end: 20050228
  3. TYSABRI [Suspect]
     Route: 042
     Dates: start: 20090716
  4. TYSABRI [Suspect]
     Route: 042
     Dates: start: 20070314, end: 20070412

REACTIONS (2)
  - DRUG INEFFECTIVE [None]
  - ASTHENIA [None]
